FAERS Safety Report 7728966-2 (Version None)
Quarter: 2011Q3

REPORT INFORMATION
  Report Type: 
  Country: None (occurrence: None)
  Receive Date: 20110906
  Receipt Date: 20110721
  Transmission Date: 20111222
  Serious: Yes (Death, Disabling, Other)
  Sender: FDA-Public Use
  Company Number: TT-BAYER-2011-063917

PATIENT

DRUGS (1)
  1. BETASERON [Suspect]
     Indication: RELAPSING-REMITTING MULTIPLE SCLEROSIS

REACTIONS (4)
  - MULTIPLE SCLEROSIS [None]
  - DEATH [None]
  - MULTIPLE SCLEROSIS RELAPSE [None]
  - IMMOBILE [None]
